FAERS Safety Report 22299479 (Version 1)
Quarter: 2023Q2

REPORT INFORMATION
  Report Type: Spontaneous
  Country: US (occurrence: US)
  Receive Date: 20230509
  Receipt Date: 20230509
  Transmission Date: 20230722
  Serious: Yes (Hospitalization, Other)
  Sender: FDA-Public Use
  Company Number: US-MALLINCKRODT-MNK202301569

PATIENT
  Age: 49 Year
  Sex: Female

DRUGS (4)
  1. UVADEX [Suspect]
     Active Substance: METHOXSALEN
     Indication: Transplant rejection
     Dosage: TWO TREATMENTS A WEEK FOR 4 WEEKS (8 TREATMENTS)
     Route: 050
  2. UVADEX [Suspect]
     Active Substance: METHOXSALEN
     Dosage: EVERY TWO WEEKS FOR 4 WEEKS (8 TREATMENTS)
     Route: 050
  3. UVADEX [Suspect]
     Active Substance: METHOXSALEN
     Dosage: EVERY 3 TO 4 WEEKS (8 TREATMENTS)
     Route: 050
  4. ANTICOAGULANT CITRATE DEXTROSE SOLUTION (ACD) NOS [Suspect]
     Active Substance: CITRIC ACID MONOHYDRATE\DEXTROSE\SODIUM CITRATE
     Indication: Anticoagulant therapy
     Dosage: UNKNOWN

REACTIONS (8)
  - Superior vena cava syndrome [Unknown]
  - Haematological infection [Unknown]
  - Thrombosis [Unknown]
  - Thrombectomy [Unknown]
  - Hypokalaemia [Unknown]
  - Anaemia [Unknown]
  - Drug hypersensitivity [Unknown]
  - Drug effective for unapproved indication [Unknown]
